FAERS Safety Report 8701786 (Version 2)
Quarter: 2012Q4

REPORT INFORMATION
  Report Type: Report from Study
  Country: DE (occurrence: DE)
  Receive Date: 20120803
  Receipt Date: 20121113
  Transmission Date: 20130627
  Serious: Yes (Hospitalization)
  Sender: FDA-Public Use
  Company Number: PHHO2012DE011229

PATIENT
  Age: 52 Year
  Sex: Female
  Weight: 160 kg

DRUGS (3)
  1. MYCOPHENOLIC ACID [Suspect]
     Indication: PANCREAS TRANSPLANT
     Dosage: 720 mg, BID
     Route: 048
     Dates: start: 20120619
  2. PROGRAF [Suspect]
     Indication: PANCREAS TRANSPLANT
     Dosage: 3.5 mg, BID
     Route: 048
     Dates: start: 20120619
  3. PREDNISOLON [Suspect]
     Dosage: 20 mg, QD
     Route: 048
     Dates: start: 20120618

REACTIONS (3)
  - Renal failure acute [Recovered/Resolved]
  - Pancreas transplant rejection [Recovered/Resolved]
  - Intra-abdominal haematoma [Recovering/Resolving]
